FAERS Safety Report 9825496 (Version 4)
Quarter: 2014Q1

REPORT INFORMATION
  Report Type: Report from Study
  Country: FR (occurrence: FR)
  Receive Date: 20140117
  Receipt Date: 20140311
  Transmission Date: 20141002
  Serious: Yes (Hospitalization, Other)
  Sender: FDA-Public Use
  Company Number: PHHY2014FR004581

PATIENT
  Age: 81 Year
  Sex: Female
  Weight: 64 kg

DRUGS (10)
  1. ACLASTA/ZOLEDRONATE [Suspect]
     Indication: OSTEOPOROTIC FRACTURE
     Dosage: 5 MG
     Route: 042
     Dates: start: 20120127
  2. IXPRIM [Concomitant]
     Dates: start: 2011
  3. PARACETAMOL [Concomitant]
     Dates: start: 2011
  4. PARACETAMOL [Concomitant]
     Dates: start: 201201
  5. UVEDOSE [Concomitant]
     Dosage: 100000 IU
     Route: 048
     Dates: start: 201207
  6. FIXICAL D3 [Concomitant]
     Dates: start: 2011
  7. FIXICAL D3 [Concomitant]
     Dosage: 1000 MG / 800 IU
     Dates: start: 201201
  8. RAMIPRIL [Concomitant]
     Dates: start: 2012
  9. DESLORATADINE [Concomitant]
     Dates: start: 2012, end: 2013
  10. ACTONEL [Concomitant]
     Dates: start: 2013

REACTIONS (5)
  - Myocardial infarction [Recovered/Resolved]
  - Tooth infection [Recovered/Resolved]
  - Inflammation [Unknown]
  - Pyrexia [Unknown]
  - Pain [Unknown]
